FAERS Safety Report 6440171-9 (Version None)
Quarter: 2009Q4

REPORT INFORMATION
  Report Type: 
  Country: None (occurrence: None)
  Receive Date: 20091113
  Receipt Date: 20090617
  Transmission Date: 20100525
  Serious: No
  Sender: FDA-Public Use
  Company Number: A0792052A

PATIENT
  Age: 79 Year
  Sex: Male

DRUGS (3)
  1. COREG [Suspect]
     Dosage: 20MG PER DAY
     Route: 048
     Dates: start: 20090615
  2. LISINOPRIL [Concomitant]
  3. ISOSORBIDE [Concomitant]

REACTIONS (1)
  - HYPERTENSION [None]
